FAERS Safety Report 11290813 (Version 2)
Quarter: 2015Q3

REPORT INFORMATION
  Report Type: Spontaneous
  Country: BE (occurrence: None)
  Receive Date: 20150720
  Receipt Date: 20150824
  Transmission Date: 20151125
  Serious: Yes (Other)
  Sender: FDA-Public Use
  Company Number: ADR-2015-01348

PATIENT
  Age: 47 Year
  Sex: Male

DRUGS (1)
  1. LIORESAL [Suspect]
     Active Substance: BACLOFEN

REACTIONS (4)
  - Muscle spasticity [None]
  - Muscle spasms [None]
  - Discomfort [None]
  - Device failure [None]

NARRATIVE: CASE EVENT DATE: 20150708
